FAERS Safety Report 6002321-8 (Version None)
Quarter: 2008Q4

REPORT INFORMATION
  Report Type: 
  Country: None (occurrence: None)
  Receive Date: 20081215
  Receipt Date: 20071203
  Transmission Date: 20090506
  Serious: No
  Sender: FDA-Public Use
  Company Number: US-AMGEN-KDL252831

PATIENT
  Sex: Female
  Weight: 84.4 kg

DRUGS (2)
  1. ENBREL [Suspect]
     Indication: RHEUMATOID ARTHRITIS
     Route: 058
     Dates: start: 20071014, end: 20071103
  2. METHOTREXATE [Concomitant]
     Route: 048
     Dates: start: 19990101

REACTIONS (5)
  - ARTHRALGIA [None]
  - BLISTER [None]
  - LIP ULCERATION [None]
  - MYALGIA [None]
  - RASH [None]
